FAERS Safety Report 7412701-1 (Version None)
Quarter: 2011Q2

REPORT INFORMATION
  Report Type: 
  Country: None (occurrence: None)
  Receive Date: 20110413
  Receipt Date: 20110408
  Transmission Date: 20111010
  Serious: Yes (Hospitalization, Congenital Anomaly)
  Sender: FDA-Public Use
  Company Number: A0687279A

PATIENT
  Sex: Female
  Weight: 3 kg

DRUGS (13)
  1. RIMANTADINE HYDROCHLORIDE [Concomitant]
     Dosage: 100MG TWICE PER DAY
     Route: 064
     Dates: start: 20050211
  2. PREVACID [Concomitant]
     Indication: ILL-DEFINED DISORDER
     Dosage: 15MG TWICE PER DAY
     Dates: start: 20060101
  3. FIORICET [Concomitant]
     Indication: HEADACHE
     Route: 064
  4. ZOFRAN [Concomitant]
     Route: 064
  5. GLYCOLAX [Concomitant]
     Indication: CONSTIPATION
     Dates: start: 20061001, end: 20071001
  6. PAROXETINE HYDROCHLORIDE [Suspect]
     Indication: PANIC ATTACK
     Dosage: 20MG PER DAY
     Route: 064
     Dates: start: 20031103, end: 20070125
  7. PAXIL [Suspect]
     Indication: PANIC ATTACK
     Dosage: 20MG PER DAY
     Route: 064
     Dates: start: 20030203, end: 20030101
  8. PAXIL CR [Suspect]
     Indication: PANIC ATTACK
     Dosage: 25MG PER DAY
     Route: 064
     Dates: start: 20070213, end: 20070501
  9. FLINTSTONE VITAMINS [Concomitant]
     Route: 064
  10. SOLU-MEDROL [Concomitant]
     Route: 064
     Dates: start: 20051130
  11. AMITRIPTYLINE [Concomitant]
     Route: 064
  12. TYLENOL W/ CODEINE NO. 3 [Concomitant]
     Route: 064
  13. METOCLOPRAMIDE [Concomitant]
     Dates: start: 20051201

REACTIONS (13)
  - GLOSSOPTOSIS [None]
  - LARYNGOMALACIA [None]
  - APNOEIC ATTACK [None]
  - PULMONARY ARTERY STENOSIS CONGENITAL [None]
  - RESPIRATORY DISTRESS [None]
  - CARDIAC MURMUR [None]
  - ATRIAL SEPTAL DEFECT [None]
  - SLEEP APNOEA SYNDROME [None]
  - HEART DISEASE CONGENITAL [None]
  - GASTROOESOPHAGEAL REFLUX DISEASE [None]
  - DRUG EXPOSURE DURING PREGNANCY [None]
  - FAILURE TO THRIVE [None]
  - MICROGNATHIA [None]
